FAERS Safety Report 5024826-9 (Version None)
Quarter: 2006Q2

REPORT INFORMATION
  Report Type: 
  Country: None (occurrence: None)
  Receive Date: 20060613
  Receipt Date: 20060531
  Transmission Date: 20061013
  Serious: Yes (Other)
  Sender: FDA-Public Use
  Company Number: PHBS2006BR08660

PATIENT
  Age: 20 Year
  Sex: Female

DRUGS (2)
  1. ANALGESICS [Concomitant]
  2. TRILEPTAL [Suspect]
     Indication: EPILEPSY
     Dosage: 300 MG, BID
     Route: 048

REACTIONS (6)
  - CEREBRAL HAEMANGIOMA [None]
  - COGNITIVE DETERIORATION [None]
  - CONVULSION [None]
  - ELECTROENCEPHALOGRAM ABNORMAL [None]
  - HAEMANGIOMA [None]
  - PYREXIA [None]
